FAERS Safety Report 7131325-7 (Version None)
Quarter: 2010Q4

REPORT INFORMATION
  Report Type: 
  Country: None (occurrence: None)
  Receive Date: 20101201
  Receipt Date: 20101126
  Transmission Date: 20110411
  Serious: Yes (Death)
  Sender: FDA-Public Use
  Company Number: FR-CEPHALON-2010006158

PATIENT
  Age: 42 Year
  Sex: Female

DRUGS (3)
  1. FENTANYL CITRATE [Suspect]
     Indication: CANCER PAIN
     Route: 002
  2. FENTANYL CITRATE [Suspect]
     Route: 002
     Dates: end: 20100901
  3. DURAGESIC-100 [Suspect]
     Indication: CANCER PAIN

REACTIONS (2)
  - INCORRECT DOSE ADMINISTERED [None]
  - UTERINE CANCER [None]
